FAERS Safety Report 5296749-1 (Version None)
Quarter: 2007Q2

REPORT INFORMATION
  Report Type: 
  Country: None (occurrence: None)
  Receive Date: 20070413
  Receipt Date: 20070403
  Transmission Date: 20071010
  Serious: Yes (Other)
  Sender: FDA-Public Use
  Company Number: NL-MERCK-0704NLD00005

PATIENT
  Age: 46 Year
  Sex: Female

DRUGS (2)
  1. ZOCOR [Suspect]
     Route: 048
     Dates: start: 19900316, end: 20060725
  2. NITRAZEPAM [Concomitant]
     Route: 048
     Dates: start: 19900316, end: 20061018

REACTIONS (2)
  - MUSCLE SPASMS [None]
  - PARALYSIS [None]
